FAERS Safety Report 9924771 (Version 2)
Quarter: 2014Q1

REPORT INFORMATION
  Report Type: Spontaneous
  Country: JP (occurrence: JP)
  Receive Date: 20140226
  Receipt Date: 20140313
  Transmission Date: 20141002
  Serious: Yes (Other)
  Sender: FDA-Public Use
  Company Number: JP-GE HEALTHCARE MEDICAL DIAGNOSTICS-OMPQ-PR-1402S-0180

PATIENT
  Age: 73 Year
  Sex: Female

DRUGS (15)
  1. OMNIPAQUE [Suspect]
     Indication: AORTIC DISSECTION
     Route: 042
     Dates: start: 20140210, end: 20140210
  2. OMNIPAQUE [Suspect]
     Indication: DIAGNOSTIC PROCEDURE
  3. TAKEPRON [Concomitant]
     Indication: GASTROOESOPHAGEAL REFLUX DISEASE
     Route: 048
     Dates: start: 2009
  4. CALBLOCK [Concomitant]
     Indication: HYPERTENSION
     Route: 048
     Dates: start: 2010
  5. MICARDIS [Concomitant]
     Indication: HYPERTENSION
     Route: 048
     Dates: start: 2010
  6. ADALAT CR [Concomitant]
     Indication: HYPERTENSION
     Route: 048
     Dates: start: 2009
  7. CONIEL [Concomitant]
     Indication: HYPERTENSION
     Route: 048
  8. LASIX [Concomitant]
     Indication: RENAL FAILURE CHRONIC
     Route: 048
     Dates: start: 2004
  9. MUCOSTA [Concomitant]
     Indication: GASTRITIS
     Route: 048
  10. CALTAN [Concomitant]
     Indication: HYPERPHOSPHATAEMIA
     Route: 048
  11. PHOSBLOCK [Concomitant]
     Indication: HYPERPHOSPHATAEMIA
     Route: 048
     Dates: start: 2004
  12. ALOSENN [Concomitant]
     Indication: CONSTIPATION
     Route: 048
     Dates: start: 2007
  13. KAYEXALATE [Concomitant]
     Indication: HYPERKALAEMIA
     Route: 048
     Dates: start: 2009
  14. PURSENNID [Concomitant]
     Indication: CONSTIPATION
     Route: 048
     Dates: start: 2004
  15. SELBEX [Concomitant]
     Indication: GASTRITIS
     Route: 048
     Dates: start: 2006

REACTIONS (1)
  - Anaphylactic shock [Recovered/Resolved]
